FAERS Safety Report 24405536 (Version 2)
Quarter: 2025Q3

REPORT INFORMATION
  Report Type: Spontaneous
  Country: CA (occurrence: CA)
  Receive Date: 20241007
  Receipt Date: 20250804
  Transmission Date: 20251021
  Serious: Yes (Hospitalization, Other)
  Sender: MYLAN
  Company Number: CA-MYLANLABS-2024M1089923

PATIENT
  Age: 37 Year
  Sex: Female

DRUGS (28)
  1. SILDENAFIL [Suspect]
     Active Substance: SILDENAFIL
     Indication: Pulmonary arterial hypertension
     Route: 065
  2. SILDENAFIL [Suspect]
     Active Substance: SILDENAFIL
  3. SILDENAFIL [Suspect]
     Active Substance: SILDENAFIL
  4. SILDENAFIL [Suspect]
     Active Substance: SILDENAFIL
     Route: 065
  5. SILDENAFIL [Suspect]
     Active Substance: SILDENAFIL
     Route: 042
  6. SILDENAFIL [Suspect]
     Active Substance: SILDENAFIL
  7. SILDENAFIL [Suspect]
     Active Substance: SILDENAFIL
  8. SILDENAFIL [Suspect]
     Active Substance: SILDENAFIL
     Route: 042
  9. EPINEPHRINE [Suspect]
     Active Substance: EPINEPHRINE
     Indication: Product used for unknown indication
  10. EPINEPHRINE [Suspect]
     Active Substance: EPINEPHRINE
     Route: 065
  11. EPINEPHRINE [Suspect]
     Active Substance: EPINEPHRINE
     Route: 065
  12. EPINEPHRINE [Suspect]
     Active Substance: EPINEPHRINE
  13. EPOPROSTENOL SODIUM [Suspect]
     Active Substance: EPOPROSTENOL SODIUM
     Indication: Pulmonary arterial hypertension
  14. EPOPROSTENOL SODIUM [Suspect]
     Active Substance: EPOPROSTENOL SODIUM
     Route: 042
  15. EPOPROSTENOL SODIUM [Suspect]
     Active Substance: EPOPROSTENOL SODIUM
     Route: 042
  16. EPOPROSTENOL SODIUM [Suspect]
     Active Substance: EPOPROSTENOL SODIUM
  17. BETAMETHASONE [Suspect]
     Active Substance: BETAMETHASONE
     Indication: Maternal therapy to enhance foetal lung maturity
  18. BETAMETHASONE [Suspect]
     Active Substance: BETAMETHASONE
     Route: 065
  19. BETAMETHASONE [Suspect]
     Active Substance: BETAMETHASONE
     Route: 065
  20. BETAMETHASONE [Suspect]
     Active Substance: BETAMETHASONE
  21. EPOPROSTENOL [Suspect]
     Active Substance: EPOPROSTENOL
     Indication: Pulmonary arterial hypertension
  22. EPOPROSTENOL [Suspect]
     Active Substance: EPOPROSTENOL
     Route: 042
  23. EPOPROSTENOL [Suspect]
     Active Substance: EPOPROSTENOL
     Route: 042
  24. EPOPROSTENOL [Suspect]
     Active Substance: EPOPROSTENOL
  25. HEPARIN [Suspect]
     Active Substance: HEPARIN SODIUM
     Indication: Product used for unknown indication
  26. HEPARIN [Suspect]
     Active Substance: HEPARIN SODIUM
     Route: 065
  27. HEPARIN [Suspect]
     Active Substance: HEPARIN SODIUM
     Route: 065
  28. HEPARIN [Suspect]
     Active Substance: HEPARIN SODIUM

REACTIONS (6)
  - Premature delivery [Unknown]
  - Condition aggravated [Unknown]
  - Hypotension [Unknown]
  - Hypoxia [Unknown]
  - Right ventricular failure [Unknown]
  - Exposure during pregnancy [Unknown]
